FAERS Safety Report 9366255 (Version 1)
Quarter: 2013Q2

REPORT INFORMATION
  Report Type: Spontaneous
  Country: US (occurrence: US)
  Receive Date: 20130625
  Receipt Date: 20130625
  Transmission Date: 20140414
  Serious: No
  Sender: FDA-Public Use
  Company Number: US-GLAXOSMITHKLINE-A0975970A

PATIENT
  Age: 64 Year
  Sex: Female

DRUGS (4)
  1. VERAMYST [Suspect]
     Indication: RHINITIS ALLERGIC
     Dosage: 2PUFF TWICE PER DAY
     Route: 045
     Dates: start: 20120425, end: 20120429
  2. ALLEGRA [Concomitant]
  3. NASONEX [Concomitant]
  4. OXYGEN [Concomitant]

REACTIONS (3)
  - Sneezing [Recovered/Resolved]
  - Nasal congestion [Unknown]
  - Intranasal hypoaesthesia [Unknown]
